FAERS Safety Report 20172525 (Version 3)
Quarter: 2022Q2

REPORT INFORMATION
  Report Type: Report from Study
  Country: US (occurrence: US)
  Receive Date: 20211210
  Receipt Date: 20220525
  Transmission Date: 20220721
  Serious: No
  Sender: FDA-Public Use
  Company Number: US-NOVARTISTESTPH-NVSC2021US282907

PATIENT
  Sex: Female

DRUGS (1)
  1. ENTRESTO [Suspect]
     Active Substance: SACUBITRIL\VALSARTAN
     Indication: Product used for unknown indication
     Dosage: UNK (REPORTER UNSURE)
     Route: 048
     Dates: start: 20211119

REACTIONS (4)
  - Weight decreased [Unknown]
  - Hypersensitivity [Unknown]
  - Cough [Unknown]
  - Product dose omission issue [Unknown]
